FAERS Safety Report 6877014-5 (Version None)
Quarter: 2010Q3

REPORT INFORMATION
  Report Type: 
  Country: None (occurrence: None)
  Receive Date: 20100727
  Receipt Date: 20100727
  Transmission Date: 20110219
  Serious: Yes (Other)
  Sender: FDA-Public Use
  Company Number: None

PATIENT
  Age: 83 Year
  Sex: Male
  Weight: 95.2554 kg

DRUGS (1)
  1. DOXAZOSIN MESYLATE [Suspect]
     Indication: HYPERTONIC BLADDER
     Dosage: 1 TABLET EACH NIGHT PO
     Route: 048
     Dates: start: 20100409, end: 20100715

REACTIONS (4)
  - DISORIENTATION [None]
  - DIZZINESS [None]
  - NAUSEA [None]
  - VOMITING [None]
